FAERS Safety Report 24406964 (Version 2)
Quarter: 2025Q2

REPORT INFORMATION
  Report Type: Spontaneous
  Country: CN (occurrence: CN)
  Receive Date: 20241007
  Receipt Date: 20250608
  Transmission Date: 20250716
  Serious: Yes (Hospitalization)
  Sender: COHERUS
  Company Number: CN-SHANGHAI JUNSHI BIOSCIENCES CO., LTD.-CN2024011471

PATIENT

DRUGS (6)
  1. TORIPALIMAB [Suspect]
     Active Substance: TORIPALIMAB
     Indication: Cholangiocarcinoma
     Route: 041
     Dates: start: 20240711, end: 20240711
  2. TORIPALIMAB [Suspect]
     Active Substance: TORIPALIMAB
     Indication: Bone cancer metastatic
  3. TORIPALIMAB [Suspect]
     Active Substance: TORIPALIMAB
     Indication: Peritoneal carcinoma metastatic
  4. GEMCITABINE HYDROCHLORIDE [Suspect]
     Active Substance: GEMCITABINE HYDROCHLORIDE
     Indication: Cholangiocarcinoma
     Route: 041
     Dates: start: 20240711, end: 20240711
  5. GEMCITABINE HYDROCHLORIDE [Suspect]
     Active Substance: GEMCITABINE HYDROCHLORIDE
     Indication: Bone cancer metastatic
     Route: 041
     Dates: start: 20240721, end: 20240721
  6. GEMCITABINE HYDROCHLORIDE [Suspect]
     Active Substance: GEMCITABINE HYDROCHLORIDE
     Indication: Peritoneal carcinoma metastatic

REACTIONS (1)
  - Myelosuppression [Recovering/Resolving]

NARRATIVE: CASE EVENT DATE: 20240718
